FAERS Safety Report 5197133-1 (Version None)
Quarter: 2007Q1

REPORT INFORMATION
  Report Type: 
  Country: None (occurrence: None)
  Receive Date: 20070103
  Receipt Date: 20070102
  Transmission Date: 20070707
  Serious: Yes (Other)
  Sender: FDA-Public Use
  Company Number: BR-GLAXOSMITHKLINE-A0633269A

PATIENT
  Age: 55 Year
  Sex: Female
  Weight: 57.8 kg

DRUGS (3)
  1. ZOVIRAX [Suspect]
     Indication: DRUG USE FOR UNKNOWN INDICATION
     Dosage: 800MG SIX TIMES PER DAY
     Route: 048
     Dates: start: 20061229, end: 20061231
  2. PREDNISOLONE [Concomitant]
     Dates: start: 20061229
  3. FLUOXETINE [Concomitant]
     Dates: start: 20060801

REACTIONS (1)
  - GASTROINTESTINAL HAEMORRHAGE [None]
